FAERS Safety Report 20336762 (Version 1)
Quarter: 2022Q1

REPORT INFORMATION
  Report Type: Spontaneous
  Country: US (occurrence: None)
  Receive Date: 20220114
  Receipt Date: 20220114
  Transmission Date: 20220423
  Serious: Yes (Death)
  Sender: FDA-Public Use
  Company Number: None

PATIENT
  Age: 68 Year
  Sex: Male

DRUGS (2)
  1. KESIMPTA [Suspect]
     Active Substance: OFATUMUMAB
     Indication: Multiple sclerosis
     Dosage: INJECT 20MG  SUBCUTANEOUSLY  AT WEEK 0.1, AND 2 THEN 20MG ONCE A MONTH STARTING AT WEEK 4   AS DIREC
     Route: 058
     Dates: start: 202011
  2. KESIMPTA [Suspect]
     Active Substance: OFATUMUMAB
     Dosage: OTHER FREQUENCY : WEEK 4 MONTHLY;?
     Route: 058

REACTIONS (1)
  - Death [None]
